FAERS Safety Report 18365185 (Version 2)
Quarter: 2020Q4

REPORT INFORMATION
  Report Type: Spontaneous
  Country: US (occurrence: US)
  Receive Date: 20201009
  Receipt Date: 20201117
  Transmission Date: 20210114
  Serious: Yes (Hospitalization)
  Sender: FDA-Public Use
  Company Number: US-INTRA-CELLULAR THERAPIES, INC.-2020ICT00162

PATIENT
  Age: 48 Year
  Sex: Female

DRUGS (11)
  1. HALOPERIDOL. [Concomitant]
     Active Substance: HALOPERIDOL
     Dosage: 2 MG, 2X/DAY
  2. PAROXETINE. [Concomitant]
     Active Substance: PAROXETINE
     Dosage: 60 MG, 1X/DAY
  3. PRAZOSIN. [Concomitant]
     Active Substance: PRAZOSIN
     Dosage: 3 MG, 1X/DAY AT BEDTIME
  4. LEVOTHYROXINE. [Concomitant]
     Active Substance: LEVOTHYROXINE
     Dosage: 175 ?G, 1X/DAY EVERY MORNING
  5. CAPLYTA [Suspect]
     Active Substance: LUMATEPERONE
     Indication: SCHIZOPHRENIA
     Dosage: 42 MG, 1X/DAY AT BEDTIME
     Route: 048
     Dates: start: 20200629, end: 20200924
  6. TRAZODONE [Concomitant]
     Active Substance: TRAZODONE HYDROCHLORIDE
     Dosage: 150 MG, 1X/DAY AT BEDTIME
  7. PROPRANOLOL [Concomitant]
     Active Substance: PROPRANOLOL HYDROCHLORIDE
     Dosage: 60 MG, 2X/DAY
  8. BENZTROPINE. [Concomitant]
     Active Substance: BENZTROPINE
     Dosage: 1-1.5 DOSAGE UNITS (2-3 MG), 2X/DAY
  9. TOPAMAX [Suspect]
     Active Substance: TOPIRAMATE
     Dosage: 200 MG, 2X/DAY
     Dates: end: 20200924
  10. SUMATRIPTAN. [Concomitant]
     Active Substance: SUMATRIPTAN
  11. DEPAKOTE ER [Concomitant]
     Active Substance: DIVALPROEX SODIUM
     Dosage: 1000 MG, 1X/DAY AT BEDTIME

REACTIONS (3)
  - Delirium [Recovered/Resolved]
  - Off label use [Recovered/Resolved]
  - Drug interaction [Recovered/Resolved]

NARRATIVE: CASE EVENT DATE: 2020
